FAERS Safety Report 6657994-3 (Version None)
Quarter: 2010Q1

REPORT INFORMATION
  Report Type: 
  Country: None (occurrence: None)
  Receive Date: 20100330
  Receipt Date: 20100317
  Transmission Date: 20100710
  Serious: Yes (Other)
  Sender: FDA-Public Use
  Company Number: US-PFIZER INC-2010035335

PATIENT
  Age: 63 Year
  Sex: Male

DRUGS (10)
  1. AZITHROMYCIN [Suspect]
     Indication: BABESIOSIS
     Dosage: 600 MG, 1X/DAY
     Route: 048
     Dates: start: 20080115, end: 20080131
  2. AZITHROMYCIN [Suspect]
     Dosage: 250 MG, 1X/DAY
     Route: 048
     Dates: start: 20080201, end: 20080227
  3. AZITHROMYCIN [Suspect]
     Dosage: 500 MG, 1X/DAY
     Route: 048
     Dates: start: 20080318
  4. AZITHROMYCIN [Suspect]
     Dosage: 500 MG, 1X/DAY
     Route: 042
     Dates: start: 20080312, end: 20080317
  5. ATOVAQUONE [Suspect]
     Indication: BABESIOSIS
     Dosage: 750 MG, 2X/DAY
     Route: 048
     Dates: start: 20080115, end: 20080227
  6. ATOVAQUONE [Suspect]
     Dosage: 750 MG, 2X/DAY
     Dates: start: 20080309
  7. ATOVAQUONE [Suspect]
     Dosage: 750 MG, 1X/DAY
     Dates: end: 20091221
  8. CLINDAMYCIN [Concomitant]
     Indication: BABESIOSIS
     Dosage: UNK
     Dates: start: 20080307, end: 20080312
  9. CLINDAMYCIN [Concomitant]
     Dosage: 300 MG, UNK
     Route: 048
     Dates: end: 20091221
  10. QUININE [Concomitant]
     Indication: BABESIOSIS
     Dosage: UNK
     Dates: start: 20080307, end: 20080309

REACTIONS (1)
  - PATHOGEN RESISTANCE [None]
